FAERS Safety Report 5332939-7 (Version None)
Quarter: 2007Q1

REPORT INFORMATION
  Report Type: 
  Country: None (occurrence: None)
  Receive Date: 20070306
  Receipt Date: 20060831
  Transmission Date: 20070707
  Serious: Yes (Other)
  Sender: FDA-Public Use
  Company Number: A03200605482

PATIENT
  Age: 81 Year
  Sex: Female

DRUGS (2)
  1. PLAVIX [Suspect]
     Indication: STENT PLACEMENT
     Dosage: 75 MG QD - ORAL
     Route: 048
     Dates: start: 20060811, end: 20060815
  2. CLOPIDOGREL BISULFATE [Suspect]
     Indication: STENT PLACEMENT
     Dosage: ORAL
     Route: 048

REACTIONS (5)
  - CARDIAC ARREST [None]
  - CARDIOGENIC SHOCK [None]
  - DYSPNOEA [None]
  - MYOCARDIAL INFARCTION [None]
  - THROMBOSIS IN DEVICE [None]
